FAERS Safety Report 18152689 (Version 1)
Quarter: 2020Q3

REPORT INFORMATION
  Report Type: Spontaneous
  Country: US (occurrence: US)
  Receive Date: 20200815
  Receipt Date: 20200815
  Transmission Date: 20201103
  Serious: Yes (Other)
  Sender: FDA-Public Use
  Company Number: US-BEH-2020120921

PATIENT
  Age: 39 Year
  Sex: Male

DRUGS (2)
  1. HUMAN IMMUNOGLOBULIN (INN) [Suspect]
     Active Substance: HUMAN IMMUNOGLOBULIN G
     Indication: IMMUNE THROMBOCYTOPENIA
     Dosage: DAILY
     Route: 042
  2. HUMAN IMMUNOGLOBULIN (INN) [Suspect]
     Active Substance: HUMAN IMMUNOGLOBULIN G
     Indication: EVANS SYNDROME
     Dosage: UNK
     Route: 042

REACTIONS (12)
  - Deep vein thrombosis [Unknown]
  - Product use in unapproved indication [Unknown]
  - Muscular weakness [Unknown]
  - Haemolytic anaemia [Unknown]
  - Coombs direct test positive [Unknown]
  - Cough [Unknown]
  - Hypoxia [Unknown]
  - Asthenia [Unknown]
  - Pyrexia [Unknown]
  - No adverse event [Unknown]
  - Autoimmune haemolytic anaemia [Unknown]
  - Fatigue [Unknown]
